FAERS Safety Report 8855747 (Version 1)
Quarter: 2012Q4

REPORT INFORMATION
  Report Type: Spontaneous
  Country: US (occurrence: None)
  Receive Date: 20121019
  Receipt Date: 20121019
  Transmission Date: 20130627
  Serious: Yes (Other)
  Sender: FDA-Public Use
  Company Number: None

PATIENT
  Sex: Female
  Weight: 93.9 kg

DRUGS (2)
  1. PRIMIDONE [Suspect]
     Indication: EPILEPSY
     Route: 048
     Dates: start: 201105
  2. MYSOLINE [Suspect]
     Indication: EPILEPSY
     Route: 048

REACTIONS (5)
  - Insomnia [None]
  - Nausea [None]
  - Vision blurred [None]
  - Reaction to drug excipients [None]
  - Product substitution issue [None]
